FAERS Safety Report 12758549 (Version 2)
Quarter: 2016Q3

REPORT INFORMATION
  Report Type: Spontaneous
  Country: GB (occurrence: GB)
  Receive Date: 20160919
  Receipt Date: 20160923
  Transmission Date: 20161109
  Serious: No
  Sender: FDA-Public Use
  Company Number: GB-ALEXION PHARMACEUTICALS INC.-A201606793

PATIENT
  Sex: Female

DRUGS (3)
  1. SOLIRIS [Suspect]
     Active Substance: ECULIZUMAB
     Indication: HAEMOLYTIC URAEMIC SYNDROME
  2. SOLIRIS [Suspect]
     Active Substance: ECULIZUMAB
     Indication: OFF LABEL USE
  3. SOLIRIS [Suspect]
     Active Substance: ECULIZUMAB
     Indication: ESCHERICHIA TEST POSITIVE
     Dosage: UNK
     Route: 042

REACTIONS (1)
  - Off label use [Unknown]
